FAERS Safety Report 13666920 (Version 1)
Quarter: 2017Q2

REPORT INFORMATION
  Report Type: Spontaneous
  Country: US (occurrence: US)
  Receive Date: 20170619
  Receipt Date: 20170619
  Transmission Date: 20170830
  Serious: No
  Sender: FDA-Public Use
  Company Number: US-ROCHE-1341213

PATIENT
  Sex: Female

DRUGS (2)
  1. XELODA [Suspect]
     Active Substance: CAPECITABINE
     Indication: PRODUCT USED FOR UNKNOWN INDICATION
     Dosage: 1 IN AM AND 2 IN PM, 14 DAYS ON, 7 DAYS OFF
     Route: 048
     Dates: start: 20130619
  2. XELODA [Suspect]
     Active Substance: CAPECITABINE
     Dosage: 1 IN AM AND 2 IN PM, 14 DAYS ON, 7 DAYS OFF
     Route: 048
     Dates: start: 20130711

REACTIONS (1)
  - Pyrexia [Unknown]
